FAERS Safety Report 26185621 (Version 1)
Quarter: 2025Q4

REPORT INFORMATION
  Report Type: Spontaneous
  Country: PR (occurrence: None)
  Receive Date: 20251219
  Receipt Date: 20251219
  Transmission Date: 20260117
  Serious: Yes (Hospitalization)
  Sender: FDA-CTU
  Company Number: None

PATIENT
  Age: 77 Year
  Sex: Male

DRUGS (7)
  1. LENALIDOMIDE [Suspect]
     Active Substance: LENALIDOMIDE
     Indication: Plasma cell myeloma
     Dosage: FREQUENCY : DAILY;
     Route: 048
  2. HEPARIN SODIUM [Concomitant]
     Active Substance: HEPARIN SODIUM
  3. CALCITRIOL [Concomitant]
     Active Substance: CALCITRIOL
  4. DARZALEX [Concomitant]
     Active Substance: DARATUMUMAB
  5. CHOLECALCIFEROL [Concomitant]
     Active Substance: CHOLECALCIFEROL
  6. SIMVASTATIN [Concomitant]
     Active Substance: SIMVASTATIN
  7. PROCRIT [Concomitant]
     Active Substance: ERYTHROPOIETIN

REACTIONS (3)
  - Thrombosis [None]
  - Pulmonary thrombosis [None]
  - General physical health deterioration [None]

NARRATIVE: CASE EVENT DATE: 20251211
